FAERS Safety Report 7443518-X (Version None)
Quarter: 2011Q2

REPORT INFORMATION
  Report Type: 
  Country: None (occurrence: None)
  Receive Date: 20110428
  Receipt Date: 20110422
  Transmission Date: 20111010
  Serious: Yes (Hospitalization, Other)
  Sender: FDA-Public Use
  Company Number: KR-ROXANE LABORATORIES, INC.-2011-RO-00556RO

PATIENT
  Age: 17 Year
  Sex: Female

DRUGS (7)
  1. METHYLPREDNISOLONE [Suspect]
     Indication: EVANS SYNDROME
     Dosage: 250 MG
  2. METHYLPREDNISOLONE [Suspect]
     Dosage: 62.5 MG
  3. PREDNISONE [Suspect]
     Dosage: 40 MG
     Route: 048
  4. TACROLIMUS [Suspect]
     Indication: PROPHYLAXIS AGAINST GRAFT VERSUS HOST DISEASE
  5. METHOTREXATE [Suspect]
     Indication: PROPHYLAXIS AGAINST GRAFT VERSUS HOST DISEASE
  6. METHYLPREDNISOLONE [Suspect]
     Dosage: 125 MG
  7. PREDNISONE [Suspect]
     Indication: EVANS SYNDROME
     Dosage: 50 MG
     Route: 048

REACTIONS (4)
  - CUSHINGOID [None]
  - EVANS SYNDROME [None]
  - CENTRAL OBESITY [None]
  - SKIN STRIAE [None]
